FAERS Safety Report 4333242-4 (Version None)
Quarter: 2004Q2

REPORT INFORMATION
  Report Type: 
  Country: None (occurrence: None)
  Receive Date: 20040406
  Receipt Date: 20040113
  Transmission Date: 20050107
  Serious: Yes (Other)
  Sender: FDA-Public Use
  Company Number: BW-BRISTOL-MYERS SQUIBB COMPANY-12477576

PATIENT

DRUGS (2)
  1. EFAVIRENZ [Suspect]
     Indication: HIV INFECTION
     Dosage: MOST RECENT DOSE PRIOR TO EVENT 02-DEC-2003.
     Dates: start: 20030411
  2. COMBIVIR [Suspect]
     Indication: HIV INFECTION
     Dosage: MOST RECENT DOSE PRIOR TO EVENT 02-DEC-2003.
     Dates: start: 20030411

REACTIONS (3)
  - DIARRHOEA [None]
  - LIPASE INCREASED [None]
  - VOMITING [None]
